FAERS Safety Report 17075816 (Version 1)
Quarter: 2019Q4

REPORT INFORMATION
  Report Type: Other
  Country: JP (occurrence: JP)
  Receive Date: 20191126
  Receipt Date: 20191126
  Transmission Date: 20200122
  Serious: Yes (Death, Life-Threatening, Other)
  Sender: FDA-Public Use
  Company Number: JP-ALSI-201900481

PATIENT
  Age: 14 Year
  Sex: Female

DRUGS (10)
  1. OXYGEN. [Suspect]
     Active Substance: OXYGEN
     Indication: DYSPNOEA
     Route: 055
  2. MELPHALAN. [Concomitant]
     Active Substance: MELPHALAN
  3. FLUTICASONE. [Concomitant]
     Active Substance: FLUTICASONE
  4. METHYLPREDNISOLONE. [Concomitant]
     Active Substance: METHYLPREDNISOLONE
  5. BUSULFAN. [Concomitant]
     Active Substance: BUSULFAN
  6. PREDNISOLONE. [Concomitant]
     Active Substance: PREDNISOLONE
  7. TACROLIMUS. [Concomitant]
     Active Substance: TACROLIMUS
  8. AZITHROMYCIN ANHYDROUS. [Concomitant]
     Active Substance: AZITHROMYCIN ANHYDROUS
  9. MONTELUKAST [Concomitant]
     Active Substance: MONTELUKAST SODIUM
  10. MYCOPHENOLATE MOFETIL. [Concomitant]
     Active Substance: MYCOPHENOLATE MOFETIL

REACTIONS (2)
  - Barotrauma [Fatal]
  - Respiratory failure [Fatal]
